FAERS Safety Report 20833307 (Version 1)
Quarter: 2022Q2

REPORT INFORMATION
  Report Type: 
  Country: None (occurrence: None)
  Receive Date: 20220516
  Receipt Date: 20220516
  Transmission Date: 20220721
  Serious: No
  Sender: FDA-Public Use
  Company Number: CA-ROCHE-1251218

PATIENT
  Age: 53 Year
  Weight: 79.4 kg

DRUGS (18)
  1. RITUXAN [Suspect]
     Active Substance: RITUXIMAB
     Dosage: PREVIOUS RITUXIMAB DOSE WAS RECEIVED ON 13/FEB/2019
     Dates: start: 20130711
  2. RITUXAN [Suspect]
     Active Substance: RITUXIMAB
     Dosage: 18/DEC/2017, RECENT DOSE
     Dates: start: 20150203
  3. CYMBALTA [Suspect]
     Active Substance: DULOXETINE HYDROCHLORIDE
     Dates: start: 201410
  4. CYMBALTA [Suspect]
     Active Substance: DULOXETINE HYDROCHLORIDE
  5. ACETAMINOPHEN\OXYCODONE HYDROCHLORIDE [Concomitant]
     Active Substance: ACETAMINOPHEN\OXYCODONE HYDROCHLORIDE
     Dates: start: 201410
  6. BENADRYL [Concomitant]
     Active Substance: DIPHENHYDRAMINE HYDROCHLORIDE
     Dates: start: 20130711
  7. SOLU-MEDROL [Concomitant]
     Active Substance: METHYLPREDNISOLONE SODIUM SUCCINATE
     Dates: start: 20130711
  8. METHOTREXATE [Concomitant]
     Active Substance: METHOTREXATE
  9. FOLIC ACID [Concomitant]
     Active Substance: FOLIC ACID
  10. PREDNISONE [Concomitant]
     Active Substance: PREDNISONE
  11. ALEVE [Concomitant]
     Active Substance: NAPROXEN SODIUM
     Dosage: AS REQUIRED
  12. TYLENOL [Concomitant]
     Active Substance: ACETAMINOPHEN
     Dates: start: 20130711
  13. LOSARTAN [Concomitant]
     Active Substance: LOSARTAN
  14. ACETAMINOPHEN [Concomitant]
     Active Substance: ACETAMINOPHEN
     Dates: start: 20130711
  15. DIPHENHYDRAMINE HYDROCHLORIDE [Concomitant]
     Active Substance: DIPHENHYDRAMINE HYDROCHLORIDE
     Dates: start: 20130711
  16. METHYLPREDNISOLONE [Concomitant]
     Active Substance: METHYLPREDNISOLONE
     Dates: start: 20130711
  17. CALCIUM [Concomitant]
     Active Substance: CALCIUM
  18. OXYCODONE [Concomitant]
     Active Substance: OXYCODONE

REACTIONS (29)
  - Depression [None]
  - Hypertension [None]
  - Nephrolithiasis [None]
  - Skin warm [None]
  - Cold sweat [None]
  - Oropharyngeal pain [None]
  - Abdominal pain [None]
  - Infusion related reaction [None]
  - Blood pressure increased [None]
  - Cough [None]
  - Oral herpes [None]
  - Pain [None]
  - Arthralgia [None]
  - Bronchitis [None]
  - Rheumatoid arthritis [None]
  - Heart rate increased [None]
  - White blood cell count increased [None]
  - Arthralgia [None]
  - Musculoskeletal stiffness [None]
  - Pain [None]
  - Blood pressure diastolic decreased [None]
  - Blood pressure diastolic abnormal [None]
  - White blood cell count decreased [None]
  - Weight increased [None]
  - Fungal infection [None]
  - Burning sensation [None]
  - Discharge [None]
  - Back pain [None]
  - Joint swelling [None]

NARRATIVE: CASE EVENT DATE: 20130714
